FAERS Safety Report 4636572-1 (Version None)
Quarter: 2005Q2

REPORT INFORMATION
  Report Type: 
  Country: None (occurrence: None)
  Receive Date: 20050414
  Receipt Date: 20050329
  Transmission Date: 20051028
  Serious: Yes (Hospitalization)
  Sender: FDA-Public Use
  Company Number: 2005-FF-00224FF

PATIENT
  Age: 85 Year
  Sex: Male

DRUGS (11)
  1. JOSIR (TAMSULOSIN) (KAR) [Suspect]
     Indication: PROSTATIC ADENOMA
     Dosage: 0.4 MG (0.4 MG)
     Route: 048
     Dates: start: 20040715
  2. ESIDRIX [Concomitant]
  3. SECTRAL [Concomitant]
  4. RAMIPRIL [Concomitant]
  5. AMLOR (AMLODIPINE BESILATE) (UNK) [Concomitant]
  6. HYPERIUM (RILMENIDINE) [Concomitant]
  7. PLAVIX [Concomitant]
  8. BETASERC (BETHAHISTINE HYDROCHLORIDE) [Concomitant]
  9. ACTONEL [Concomitant]
  10. AVODART [Concomitant]
  11. MIXTARD (UN) [Concomitant]

REACTIONS (10)
  - BLOOD PRESSURE FLUCTUATION [None]
  - ECCHYMOSIS [None]
  - FALL [None]
  - HAEMOGLOBIN DECREASED [None]
  - HEAD INJURY [None]
  - HEART RATE DECREASED [None]
  - LOSS OF CONSCIOUSNESS [None]
  - MALAISE [None]
  - ORTHOSTATIC HYPOTENSION [None]
  - RENAL IMPAIRMENT [None]
